FAERS Safety Report 17336880 (Version 1)
Quarter: 2020Q1

REPORT INFORMATION
  Report Type: Spontaneous
  Country: US (occurrence: US)
  Receive Date: 20200128
  Receipt Date: 20200128
  Transmission Date: 20200409
  Serious: Yes (Hospitalization, Other)
  Sender: FDA-Public Use
  Company Number: US-GILEAD-2020-0448424

PATIENT
  Age: 53 Year
  Sex: Male
  Weight: 91.1 kg

DRUGS (12)
  1. FAMOTIDINE. [Concomitant]
     Active Substance: FAMOTIDINE
  2. CYTOXAN [Concomitant]
     Active Substance: CYCLOPHOSPHAMIDE
     Indication: BONE MARROW CONDITIONING REGIMEN
  3. POSACONAZOLE [Concomitant]
     Active Substance: POSACONAZOLE
  4. DAPSONE. [Concomitant]
     Active Substance: DAPSONE
  5. LEVOFLOXACIN. [Concomitant]
     Active Substance: LEVOFLOXACIN
  6. YESCARTA [Suspect]
     Active Substance: AXICABTAGENE CILOLEUCEL
     Indication: CHRONIC LYMPHOCYTIC LEUKAEMIA
     Dosage: 1 DOSAGE FORM, ONCE
     Route: 041
     Dates: start: 20190514, end: 20190514
  7. FILGRASTIM [Concomitant]
     Active Substance: FILGRASTIM
  8. THIAMINE. [Concomitant]
     Active Substance: THIAMINE
  9. FLUDARABINE [Concomitant]
     Active Substance: FLUDARABINE PHOSPHATE
     Indication: BONE MARROW CONDITIONING REGIMEN
  10. LEVETIRACETAM. [Concomitant]
     Active Substance: LEVETIRACETAM
  11. GABAPENTIN. [Concomitant]
     Active Substance: GABAPENTIN
  12. TRAMADOL. [Concomitant]
     Active Substance: TRAMADOL

REACTIONS (2)
  - Neurotoxicity [Recovered/Resolved]
  - Cytokine release syndrome [Recovered/Resolved]

NARRATIVE: CASE EVENT DATE: 201905
